FAERS Safety Report 4934956-5 (Version None)
Quarter: 2006Q1

REPORT INFORMATION
  Report Type: 
  Country: None (occurrence: None)
  Receive Date: 20060303
  Receipt Date: 20060303
  Transmission Date: 20060701
  Serious: Yes (Other)
  Sender: FDA-Public Use
  Company Number: None

PATIENT
  Age: 39 Year
  Sex: Female
  Weight: 70.3075 kg

DRUGS (1)
  1. ZELNORM [Suspect]
     Indication: IRRITABLE BOWEL SYNDROME
     Dosage: 1    2 XS    PO
     Route: 048
     Dates: start: 20030401, end: 20060220

REACTIONS (3)
  - COLITIS [None]
  - HAEMATOCHEZIA [None]
  - SKIN FISSURES [None]
